FAERS Safety Report 8429595-8 (Version None)
Quarter: 2012Q2

REPORT INFORMATION
  Report Type: 
  Country: None (occurrence: None)
  Receive Date: 20120612
  Receipt Date: 20120604
  Transmission Date: 20120825
  Serious: Yes (Other)
  Sender: FDA-Public Use
  Company Number: PHHY2012CA046031

PATIENT
  Sex: Female

DRUGS (5)
  1. NORVASC [Concomitant]
  2. LYRICA [Concomitant]
  3. ZOLEDRONOC ACID [Suspect]
     Indication: OSTEOPOROSIS
     Dosage: UNK
     Route: 042
     Dates: start: 20110713
  4. VITAMIN D [Concomitant]
  5. NEXIUM [Concomitant]

REACTIONS (1)
  - MACULAR DEGENERATION [None]
